FAERS Safety Report 9972759 (Version 3)
Quarter: 2014Q2

REPORT INFORMATION
  Report Type: Spontaneous
  Country: US (occurrence: US)
  Receive Date: 20140306
  Receipt Date: 20140430
  Transmission Date: 20141212
  Serious: No
  Sender: FDA-Public Use
  Company Number: US-PFIZER INC-2014059814

PATIENT
  Age: 67 Year
  Sex: Male
  Weight: 93.42 kg

DRUGS (1)
  1. INLYTA [Suspect]
     Indication: METASTATIC RENAL CELL CARCINOMA
     Dosage: 5 MG, 2X/DAY
     Dates: start: 20140225

REACTIONS (7)
  - Back pain [Unknown]
  - Muscular weakness [Unknown]
  - Limb discomfort [Unknown]
  - Hypertension [Unknown]
  - Blood lactate dehydrogenase abnormal [Unknown]
  - Polycythaemia [Unknown]
  - Balance disorder [Unknown]
